FAERS Safety Report 8148694 (Version 3)
Quarter: 2013Q2

REPORT INFORMATION
  Report Type: Spontaneous
  Country: US (occurrence: US)
  Receive Date: 20110922
  Receipt Date: 20130410
  Transmission Date: 20140414
  Serious: Yes (Other)
  Sender: FDA-Public Use
  Company Number: US-ASTRAZENECA-2011SE12660

PATIENT
  Age: 52 Year
  Sex: Female

DRUGS (7)
  1. SEROQUEL [Suspect]
     Route: 048
     Dates: start: 20020522
  2. ZYPREXA [Concomitant]
     Dates: start: 20020522
  3. PROZAC [Concomitant]
     Dates: start: 20020522
  4. LUVOX [Concomitant]
     Route: 048
     Dates: start: 20020522
  5. KLONOPIN [Concomitant]
     Route: 048
     Dates: start: 20020522
  6. NEURONTIN [Concomitant]
     Route: 048
     Dates: start: 20020522
  7. CLOMIPRAMINE [Concomitant]
     Dates: start: 20020522

REACTIONS (3)
  - Pancreatitis [Unknown]
  - Diabetic coma [Unknown]
  - Type 2 diabetes mellitus [Unknown]
